FAERS Safety Report 8549012-7 (Version None)
Quarter: 2012Q3

REPORT INFORMATION
  Report Type: 
  Country: None (occurrence: None)
  Receive Date: 20120730
  Receipt Date: 20120719
  Transmission Date: 20120928
  Serious: Yes (Other)
  Sender: FDA-Public Use
  Company Number: JP-MILLENNIUM PHARMACEUTICALS, INC.-2012-04925

PATIENT

DRUGS (14)
  1. NIFEDIPINE [Concomitant]
     Route: 048
  2. MAGNESIUM OXIDE [Concomitant]
     Route: 048
  3. PREGABALIN [Concomitant]
     Route: 048
  4. ACETAMINOPHEN [Concomitant]
  5. OLMESARTAN MEDOXOMIL [Concomitant]
     Route: 048
  6. SENNOSIDE                          /00571902/ [Concomitant]
     Route: 048
  7. ASPIRIN [Concomitant]
     Route: 048
  8. ALLOPURINOL [Concomitant]
     Route: 048
  9. OXYCODONE HCL [Concomitant]
     Route: 048
  10. MOSAPRIDE CITRATE [Concomitant]
     Route: 048
  11. DEXAMETHASONE [Concomitant]
  12. VELCADE [Suspect]
     Indication: MULTIPLE MYELOMA
     Dosage: 1.3 MG/M2, UNK
     Route: 042
  13. PROCHLORPERAZINE MALEATE [Concomitant]
  14. AMOXAPINE [Concomitant]
     Route: 048

REACTIONS (1)
  - HAEMOLYTIC ANAEMIA [None]
